FAERS Safety Report 7227217-5 (Version None)
Quarter: 2011Q1

REPORT INFORMATION
  Report Type: 
  Country: None (occurrence: None)
  Receive Date: 20110114
  Receipt Date: 20101222
  Transmission Date: 20110831
  Serious: Yes (Death, Hospitalization)
  Sender: FDA-Public Use
  Company Number: A0801150A

PATIENT
  Age: 64 Year
  Sex: Male
  Weight: 125.5 kg

DRUGS (9)
  1. CATAPRES [Concomitant]
  2. TOPROL-XL [Concomitant]
  3. MOBIC [Concomitant]
  4. PRINZIDE [Concomitant]
  5. STARLIX [Concomitant]
  6. ZOCOR [Concomitant]
  7. PROTONIX [Concomitant]
  8. AVANDIA [Suspect]
     Indication: TYPE 2 DIABETES MELLITUS
     Dosage: 4MG PER DAY
     Route: 048
     Dates: start: 20000501, end: 20070501
  9. ZYLOPRIM [Concomitant]

REACTIONS (4)
  - ATRIAL FIBRILLATION [None]
  - MYOCARDIAL INFARCTION [None]
  - DEATH [None]
  - CORONARY ARTERY DISEASE [None]
